FAERS Safety Report 5318371-0 (Version None)
Quarter: 2007Q1

REPORT INFORMATION
  Report Type: 
  Country: None (occurrence: None)
  Receive Date: 20070130
  Receipt Date: 20061018
  Transmission Date: 20070707
  Serious: No
  Sender: FDA-Public Use
  Company Number: 200618643US

PATIENT
  Sex: 0

DRUGS (1)
  1. KETEK [Suspect]

REACTIONS (1)
  - CHROMATURIA [None]
